FAERS Safety Report 24045258 (Version 1)
Quarter: 2024Q3

REPORT INFORMATION
  Report Type: Spontaneous
  Country: US (occurrence: US)
  Receive Date: 20240703
  Receipt Date: 20240703
  Transmission Date: 20241017
  Serious: Yes (Other)
  Sender: PFIZER
  Company Number: US-PFIZER INC-202400205217

PATIENT
  Age: 78 Year
  Sex: Female
  Weight: 49.887 kg

DRUGS (1)
  1. IBRANCE [Suspect]
     Active Substance: PALBOCICLIB
     Indication: Breast cancer metastatic
     Dosage: 125 MG, DAILY
     Route: 048
     Dates: start: 202405, end: 2024

REACTIONS (5)
  - Nausea [Unknown]
  - Drug hypersensitivity [Unknown]
  - Urticaria [Recovered/Resolved]
  - Vomiting [Recovered/Resolved]
  - Pruritus [Recovered/Resolved]

NARRATIVE: CASE EVENT DATE: 20240501
